FAERS Safety Report 24406829 (Version 1)
Quarter: 2024Q4

REPORT INFORMATION
  Report Type: Spontaneous
  Country: US (occurrence: None)
  Receive Date: 20241006
  Receipt Date: 20241006
  Transmission Date: 20250114
  Serious: Yes (Hospitalization, Disabling)
  Sender: Public
  Company Number: None

PATIENT
  Age: 67 Year
  Sex: Female
  Weight: 87.75 kg

DRUGS (10)
  1. DIETARY SUPPLEMENT [Suspect]
     Active Substance: DIETARY SUPPLEMENT
     Indication: Arthritis
     Dosage: OTHER QUANTITY : 2 TABLET(S);?FREQUENCY : TWICE A DAY;?
     Route: 048
     Dates: start: 20220615, end: 20241004
  2. PREDNISONE [Concomitant]
     Active Substance: PREDNISONE
  3. Metropol [Concomitant]
  4. HYDRALAZINE [Concomitant]
  5. Albusone [Concomitant]
  6. LYRICA [Concomitant]
  7. NORCO [Concomitant]
     Active Substance: ACETAMINOPHEN\HYDROCODONE BITARTRATE
  8. GLYBURIDE [Suspect]
     Active Substance: GLYBURIDE
  9. METFORMIN [Suspect]
     Active Substance: METFORMIN HYDROCHLORIDE
  10. HUMALOG [Suspect]
     Active Substance: INSULIN LISPRO

REACTIONS (4)
  - Blood pressure increased [None]
  - Blood glucose increased [None]
  - Muscular weakness [None]
  - Gait inability [None]

NARRATIVE: CASE EVENT DATE: 20230606
